FAERS Safety Report 11878558 (Version 1)
Quarter: 2015Q4

REPORT INFORMATION
  Report Type: Spontaneous
  Country: JP (occurrence: JP)
  Receive Date: 20151230
  Receipt Date: 20151230
  Transmission Date: 20160305
  Serious: Yes (Disabling, Other)
  Sender: FDA-Public Use
  Company Number: JP-MYLANLABS-2015M1047068

PATIENT

DRUGS (3)
  1. SODIUM THIOSULFATE [Suspect]
     Active Substance: SODIUM THIOSULFATE
     Indication: GANGRENE
     Dosage: 25G OVER 60 MIN, 3 TIMES AFTER HEMODIALYSIS
     Route: 041
  2. WARFARIN [Suspect]
     Active Substance: WARFARIN
     Indication: PRODUCT USED FOR UNKNOWN INDICATION
     Route: 065
  3. BERAPROST [Concomitant]
     Active Substance: BERAPROST
     Indication: PRODUCT USED FOR UNKNOWN INDICATION
     Route: 065

REACTIONS (3)
  - Gangrene [Not Recovered/Not Resolved]
  - Calciphylaxis [Not Recovered/Not Resolved]
  - Skin necrosis [Recovered/Resolved]
